FAERS Safety Report 5705378-4 (Version None)
Quarter: 2008Q2

REPORT INFORMATION
  Report Type: 
  Country: None (occurrence: None)
  Receive Date: 20080415
  Receipt Date: 20080410
  Transmission Date: 20081010
  Serious: Yes (Death, Other)
  Sender: FDA-Public Use
  Company Number: CL-BRISTOL-MYERS SQUIBB COMPANY-14136857

PATIENT
  Age: 29 Year
  Sex: Male

DRUGS (7)
  1. AMPHOTERICIN B [Suspect]
     Indication: HISTOPLASMOSIS
  2. COTRIM [Suspect]
  3. CEFOTAXIME SODIUM [Suspect]
  4. ITRACONAZOLE [Suspect]
     Route: 048
  5. ALBENDAZOLE [Suspect]
  6. CLINDAMYCIN HCL [Suspect]
     Route: 042
  7. AZITHROMYCIN [Suspect]

REACTIONS (3)
  - AGITATION [None]
  - DEATH [None]
  - OXYGEN SATURATION DECREASED [None]
